FAERS Safety Report 10721009 (Version 1)
Quarter: 2015Q1

REPORT INFORMATION
  Report Type: Spontaneous
  Country: US (occurrence: US)
  Receive Date: 20150119
  Receipt Date: 20150119
  Transmission Date: 20150721
  Serious: No
  Sender: FDA-Public Use
  Company Number: US-UNITED THERAPEUTICS-UNT-2014-006492

PATIENT
  Sex: Female
  Weight: 30.16 kg

DRUGS (1)
  1. REMODULIN [Suspect]
     Active Substance: TREPROSTINIL
     Indication: HEART DISEASE CONGENITAL
     Dosage: 0.092 ?G/KG/MIN, CONTINUING
     Route: 058
     Dates: start: 20130612

REACTIONS (1)
  - Musculoskeletal pain [Unknown]
